FAERS Safety Report 8531001-X (Version None)
Quarter: 2012Q3

REPORT INFORMATION
  Report Type: 
  Country: None (occurrence: None)
  Receive Date: 20120711
  Receipt Date: 20120627
  Transmission Date: 20120928
  Serious: Yes (Death, Other)
  Sender: FDA-Public Use
  Company Number: ENTC2012-0194

PATIENT
  Age: 93 Year
  Sex: Female

DRUGS (2)
  1. AKINETON [Concomitant]
  2. STALEVO 50 [Suspect]
     Indication: PARKINSON'S DISEASE
     Dosage: 1 TABLET (150/37.5/200 MG, THRICE, ORAL
     Route: 048
     Dates: start: 20110501, end: 20120601

REACTIONS (8)
  - HYPOACUSIS [None]
  - NEOPLASM MALIGNANT [None]
  - MYOCARDIAL INFARCTION [None]
  - DIARRHOEA [None]
  - TREMOR [None]
  - VAGINAL HAEMORRHAGE [None]
  - ABDOMINAL PAIN [None]
  - HEAD TITUBATION [None]
